FAERS Safety Report 6273533-3 (Version None)
Quarter: 2009Q3

REPORT INFORMATION
  Report Type: 
  Country: None (occurrence: None)
  Receive Date: 20090716
  Receipt Date: 20090703
  Transmission Date: 20100115
  Serious: Yes (Other)
  Sender: FDA-Public Use
  Company Number: URSO-2009-062 FUP#2

PATIENT
  Age: 73 Year
  Sex: Male

DRUGS (5)
  1. URSO 250 [Suspect]
     Indication: CHOLELITHIASIS
     Dosage: 300MG
     Route: 048
     Dates: start: 19990801, end: 20080501
  2. FAMOTIDINE [Concomitant]
  3. SELBEX (TEPRENONE) [Concomitant]
  4. AMLODIPINE BESYLATE [Concomitant]
  5. MAGLAX [Concomitant]

REACTIONS (1)
  - GALLSTONE ILEUS [None]
